FAERS Safety Report 12220954 (Version 2)
Quarter: 2016Q2

REPORT INFORMATION
  Report Type: Spontaneous
  Country: JP (occurrence: JP)
  Receive Date: 20160330
  Receipt Date: 20160425
  Transmission Date: 20160815
  Serious: Yes (Other)
  Sender: FDA-Public Use
  Company Number: JP-EMD SERONO-8073811

PATIENT
  Age: 25 Year
  Sex: Male

DRUGS (1)
  1. SAIZEN [Suspect]
     Active Substance: SOMATROPIN
     Indication: CHONDRODYSTROPHY
     Route: 065

REACTIONS (3)
  - Spinal cord injury [Unknown]
  - Spinal column stenosis [Unknown]
  - Off label use [Unknown]
